FAERS Safety Report 5123943-2 (Version None)
Quarter: 2006Q3

REPORT INFORMATION
  Report Type: 
  Country: None (occurrence: None)
  Receive Date: 20060811
  Receipt Date: 20060619
  Transmission Date: 20061208
  Serious: No
  Sender: FDA-Public Use
  Company Number: S06-USA-02411-01

PATIENT
  Age: 91 Year
  Sex: Female

DRUGS (2)
  1. NAMENDA [Suspect]
     Indication: DEMENTIA ALZHEIMER'S TYPE
     Dosage: 5 MG QD PO
     Route: 048
     Dates: start: 20060617
  2. ATIVAN [Concomitant]

REACTIONS (2)
  - AGGRESSION [None]
  - NERVOUSNESS [None]
